FAERS Safety Report 6464850-2 (Version None)
Quarter: 2009Q4

REPORT INFORMATION
  Report Type: 
  Country: None (occurrence: None)
  Receive Date: 20091201
  Receipt Date: 20090731
  Transmission Date: 20100525
  Serious: Yes (Hospitalization)
  Sender: FDA-Public Use
  Company Number: A0832045A

PATIENT
  Age: 79 Year
  Sex: Male

DRUGS (12)
  1. MELPHALAN [Suspect]
     Indication: MULTIPLE MYELOMA
     Dates: start: 20090324, end: 20090615
  2. UNKNOWN [Suspect]
     Indication: MULTIPLE MYELOMA
     Dosage: 100MG PER DAY
     Route: 048
     Dates: start: 20090324, end: 20090615
  3. REVLIMID [Suspect]
     Indication: MULTIPLE MYELOMA
     Dosage: 5MG PER DAY
     Route: 048
     Dates: start: 20090701
  4. PREDNISONE [Suspect]
     Indication: MULTIPLE MYELOMA
     Dates: start: 20090324, end: 20090615
  5. PLAVIX [Concomitant]
     Indication: DEEP VEIN THROMBOSIS
  6. DIOVAN [Concomitant]
  7. PROTONIX [Concomitant]
  8. RESTORIL [Concomitant]
  9. DILTIAZEM HYDROCHLORIDE [Concomitant]
  10. ZOCOR [Concomitant]
  11. FRAGMIN [Concomitant]
  12. DEXAMETHASONE TAB [Concomitant]
     Route: 048

REACTIONS (8)
  - DEEP VEIN THROMBOSIS [None]
  - DIZZINESS [None]
  - HAEMODIALYSIS [None]
  - INFECTION [None]
  - OEDEMA PERIPHERAL [None]
  - RENAL FAILURE ACUTE [None]
  - RENAL PAIN [None]
  - ULTRASOUND SCAN [None]
